FAERS Safety Report 6502689-X (Version None)
Quarter: 2009Q4

REPORT INFORMATION
  Report Type: 
  Country: None (occurrence: None)
  Receive Date: 20091217
  Receipt Date: 20091209
  Transmission Date: 20100525
  Serious: Yes (Other)
  Sender: FDA-Public Use
  Company Number: US-JNJFOC-20091203221

PATIENT
  Sex: Female
  Weight: 54.43 kg

DRUGS (3)
  1. ORTHO EVRA [Suspect]
     Indication: MENSTRUATION IRREGULAR
     Route: 062
  2. ORTHO EVRA [Suspect]
     Route: 062
  3. DILANTIN [Suspect]
     Indication: CONVULSION
     Route: 065

REACTIONS (3)
  - CONVULSION [None]
  - OFF LABEL USE [None]
  - THERAPEUTIC RESPONSE UNEXPECTED [None]
